FAERS Safety Report 7739823-X (Version None)
Quarter: 2011Q3

REPORT INFORMATION
  Report Type: 
  Country: None (occurrence: None)
  Receive Date: 20110909
  Receipt Date: 20110830
  Transmission Date: 20111222
  Serious: Yes (Other)
  Sender: FDA-Public Use
  Company Number: PHFR2011GB05070

PATIENT
  Sex: Female

DRUGS (1)
  1. VOLTAREN [Suspect]
     Indication: ARTHRITIS
     Dosage: 50 MG, QD
     Route: 048

REACTIONS (9)
  - GAIT DISTURBANCE [None]
  - LOSS OF CONSCIOUSNESS [None]
  - ORAL PAIN [None]
  - LIP PAIN [None]
  - ORAL DISCOMFORT [None]
  - BURNING SENSATION [None]
  - PAIN [None]
  - DRUG DEPENDENCE [None]
  - PARAESTHESIA [None]
